FAERS Safety Report 7133943-9 (Version None)
Quarter: 2010Q4

REPORT INFORMATION
  Report Type: 
  Country: None (occurrence: None)
  Receive Date: 20101203
  Receipt Date: 20100706
  Transmission Date: 20110411
  Serious: Yes (Death)
  Sender: FDA-Public Use
  Company Number: US-BAYER-201020430NA

PATIENT

DRUGS (8)
  1. YAZ [Suspect]
     Dosage: AS USED DOSE: UNK
     Route: 048
     Dates: start: 20070928, end: 20080418
  2. YAZ [Suspect]
     Indication: PREMENSTRUAL SYNDROME
  3. CLARINEX [Concomitant]
     Route: 065
  4. VALTREX [Concomitant]
     Route: 065
  5. ADDERALL 10 [Concomitant]
     Route: 065
  6. LEXAPRO [Concomitant]
     Route: 065
  7. PROVENTIL-HFA [Concomitant]
     Dosage: 1-2 PUFFS EVERY 4-6 HOURS AS NEEDED
     Route: 055
  8. UNKNOWN DRUG [Concomitant]
     Indication: DEPRESSION
     Route: 065

REACTIONS (4)
  - ASTHMA [None]
  - PHARYNGITIS [None]
  - PULMONARY EMBOLISM [None]
  - UPPER-AIRWAY COUGH SYNDROME [None]
